FAERS Safety Report 6557917-1 (Version None)
Quarter: 2010Q1

REPORT INFORMATION
  Report Type: 
  Country: None (occurrence: None)
  Receive Date: 20100129
  Receipt Date: 20100118
  Transmission Date: 20100710
  Serious: Yes (Hospitalization)
  Sender: FDA-Public Use
  Company Number: HU-ELI_LILLY_AND_COMPANY-HU201001003194

PATIENT
  Sex: Male

DRUGS (4)
  1. ZYPREXA [Suspect]
     Indication: SCHIZOPHRENIA
     Dosage: 20 MG, UNK
     Route: 048
     Dates: start: 20090716, end: 20090726
  2. RISPERDAL [Concomitant]
     Indication: SCHIZOPHRENIA
     Dosage: 6 MG, UNK
     Route: 048
     Dates: start: 20090716, end: 20090726
  3. SERDOLECT [Concomitant]
     Indication: SCHIZOPHRENIA
     Dosage: 12 MG, UNK
     Route: 048
     Dates: start: 20090716, end: 20090726
  4. RIVOTRIL [Concomitant]
     Indication: ANXIETY
     Dosage: 3 MG, UNK
     Dates: start: 20090601

REACTIONS (2)
  - AGGRESSION [None]
  - ANXIETY [None]
